FAERS Safety Report 11129251 (Version 2)
Quarter: 2015Q2

REPORT INFORMATION
  Report Type: Spontaneous
  Country: US (occurrence: US)
  Receive Date: 20150521
  Receipt Date: 20150612
  Transmission Date: 20150821
  Serious: Yes (Other)
  Sender: FDA-Public Use
  Company Number: US-PFIZER INC-2015170713

PATIENT
  Age: 51 Year
  Sex: Female

DRUGS (2)
  1. IBRANCE [Suspect]
     Active Substance: PALBOCICLIB
     Indication: BREAST CANCER METASTATIC
     Dosage: 125 MG, 1X/DAY (D1-D21 Q28DAILY)
     Route: 048
     Dates: start: 20150416, end: 201505
  2. IBRANCE [Suspect]
     Active Substance: PALBOCICLIB
     Dosage: 125 MG, 1X/DAY (D1-D21 Q28DAILY)
     Route: 048
     Dates: start: 20150515, end: 20150605

REACTIONS (5)
  - Neutropenia [Unknown]
  - Platelet count decreased [Unknown]
  - Breast cancer metastatic [Unknown]
  - Laboratory test abnormal [Unknown]
  - Disease progression [Unknown]

NARRATIVE: CASE EVENT DATE: 2015
